FAERS Safety Report 22347160 (Version 1)
Quarter: 2023Q2

REPORT INFORMATION
  Report Type: Report from Study
  Country: RU (occurrence: RU)
  Receive Date: 20230520
  Receipt Date: 20230520
  Transmission Date: 20230722
  Serious: Yes (Other)
  Sender: FDA-Public Use
  Company Number: RU-002147023-NVSC2023RU113696

PATIENT
  Age: 40 Year
  Sex: Male
  Weight: 71 kg

DRUGS (1)
  1. COSENTYX [Suspect]
     Active Substance: SECUKINUMAB
     Indication: Enthesopathy
     Dosage: UNK, (WHEN PATIENT WAS 38 YEARS OLD, AS THE 1ST LINE OF THERAPY)
     Route: 065

REACTIONS (4)
  - Ankylosing spondylitis [Unknown]
  - HLA-B*27 positive [Unknown]
  - C-reactive protein increased [Unknown]
  - Product use in unapproved indication [Unknown]
